FAERS Safety Report 10009603 (Version 2)
Quarter: 2014Q1

REPORT INFORMATION
  Report Type: Spontaneous
  Country: US (occurrence: US)
  Receive Date: 20140312
  Receipt Date: 20140312
  Transmission Date: 20141002
  Serious: No
  Sender: FDA-Public Use
  Company Number: US-INCYTE CORPORATION-2012IN001837

PATIENT
  Age: 54 Year
  Sex: Female

DRUGS (9)
  1. JAKAFI [Suspect]
     Indication: SPLENOMEGALY
     Dosage: 10 MG, BID
     Route: 048
     Dates: start: 20120806
  2. JAKAFI [Suspect]
     Indication: MYELOFIBROSIS
  3. LEXAPRO [Concomitant]
  4. LEVOTHYROXINE [Concomitant]
  5. COLCHICINE [Concomitant]
  6. ALLOPURINOL [Concomitant]
  7. ATIVAN [Concomitant]
  8. ZYRTEC [Concomitant]
  9. DHEA [Concomitant]

REACTIONS (3)
  - Neck pain [Not Recovered/Not Resolved]
  - Musculoskeletal stiffness [Not Recovered/Not Resolved]
  - Bone pain [Not Recovered/Not Resolved]
